FAERS Safety Report 5786051-3 (Version None)
Quarter: 2008Q2

REPORT INFORMATION
  Report Type: 
  Country: None (occurrence: None)
  Receive Date: 20080624
  Receipt Date: 20070625
  Transmission Date: 20081010
  Serious: No
  Sender: FDA-Public Use
  Company Number: US-ASTRAZENECA-2007UW15168

PATIENT
  Age: 13 Year
  Sex: Male
  Weight: 42.6 kg

DRUGS (1)
  1. PULMICORT FLEXHALER [Suspect]
     Indication: ASTHMA
     Route: 055
     Dates: start: 20070601

REACTIONS (1)
  - PSYCHOMOTOR HYPERACTIVITY [None]
